FAERS Safety Report 14268601 (Version 2)
Quarter: 2017Q4

REPORT INFORMATION
  Report Type: Report from Study
  Country: CA (occurrence: CA)
  Receive Date: 20171211
  Receipt Date: 20171213
  Transmission Date: 20180321
  Serious: Yes (Death)
  Sender: FDA-Public Use
  Company Number: CA-JNJFOC-20171208757

PATIENT
  Sex: Male

DRUGS (1)
  1. REMICADE [Suspect]
     Active Substance: INFLIXIMAB
     Indication: COLITIS ULCERATIVE
     Dosage: STRENGTH = 100 MG
     Route: 042
     Dates: start: 20171012, end: 20171115

REACTIONS (3)
  - Abdominal abscess [Fatal]
  - Large intestine perforation [Fatal]
  - Colitis ulcerative [Fatal]

NARRATIVE: CASE EVENT DATE: 2017
